FAERS Safety Report 9352653 (Version 1)
Quarter: 2013Q2

REPORT INFORMATION
  Report Type: Spontaneous
  Country: AE (occurrence: AE)
  Receive Date: 20130618
  Receipt Date: 20130618
  Transmission Date: 20140414
  Serious: Yes (Other)
  Sender: FDA-Public Use
  Company Number: AE-AMGEN-ARESP2013042073

PATIENT
  Age: 31 Year
  Sex: Male

DRUGS (2)
  1. ENBREL [Suspect]
     Indication: PSORIASIS
     Dosage: 50 MG TWICE/WEEK FOR 4 WEEKS
     Route: 058
  2. ENBREL [Suspect]
     Dosage: 50 MG ONCE/WEEK FOR 2 WEEKS
     Route: 058

REACTIONS (1)
  - Neutrophil count decreased [Not Recovered/Not Resolved]
